FAERS Safety Report 7933743 (Version 2)
Quarter: 2013Q4

REPORT INFORMATION
  Report Type: Spontaneous
  Country: US (occurrence: US)
  Receive Date: 20110506
  Receipt Date: 20131206
  Transmission Date: 20140711
  Serious: Yes (Hospitalization, Other)
  Sender: FDA-Public Use
  Company Number: US-ROCHE-747641

PATIENT
  Age: 25 Year
  Sex: Female
  Weight: 54.4 kg

DRUGS (3)
  1. ACCUTANE [Suspect]
     Indication: ACNE
     Route: 065
     Dates: start: 19951219, end: 19960529
  2. ACCUTANE [Suspect]
     Route: 065
     Dates: start: 20050624, end: 20051001
  3. ADVAIR [Concomitant]
     Indication: ASTHMA

REACTIONS (18)
  - Colitis ulcerative [Unknown]
  - Anaemia [Unknown]
  - Intestinal haemorrhage [Unknown]
  - Depression [Unknown]
  - Gastrointestinal injury [Unknown]
  - Inflammatory bowel disease [Unknown]
  - Oedema peripheral [Unknown]
  - Dry eye [Unknown]
  - Stress [Unknown]
  - Abdominal pain [Unknown]
  - Headache [Unknown]
  - Ear infection [Unknown]
  - Arthritis [Unknown]
  - Lip dry [Unknown]
  - Dry skin [Unknown]
  - Blood cholesterol increased [Unknown]
  - Sinusitis [Unknown]
  - Bronchitis [Unknown]
